FAERS Safety Report 4983942-8 (Version None)
Quarter: 2006Q2

REPORT INFORMATION
  Report Type: 
  Country: None (occurrence: None)
  Receive Date: 20060426
  Receipt Date: 20050926
  Transmission Date: 20061013
  Serious: Yes (Other)
  Sender: FDA-Public Use
  Company Number: US-MERCK-0509USA03805

PATIENT
  Age: 50 Year
  Sex: Female
  Weight: 91 kg

DRUGS (7)
  1. VIOXX [Suspect]
     Indication: CHEST PAIN
     Route: 048
     Dates: start: 20031008
  2. VIOXX [Suspect]
     Route: 048
     Dates: start: 20030901
  3. FLOVENT [Concomitant]
     Route: 065
  4. NORVASC [Concomitant]
     Route: 065
  5. LIPITOR [Concomitant]
     Route: 065
  6. LEVOXYL [Concomitant]
     Route: 065
  7. LISINOPRIL-BC [Concomitant]
     Route: 065

REACTIONS (5)
  - ANGINA PECTORIS [None]
  - ANXIETY [None]
  - CARDIOVASCULAR DISORDER [None]
  - MYOCARDIAL INFARCTION [None]
  - THROMBOSIS [None]
